FAERS Safety Report 8220664-4 (Version None)
Quarter: 2012Q1

REPORT INFORMATION
  Report Type: 
  Country: None (occurrence: None)
  Receive Date: 20120320
  Receipt Date: 20120308
  Transmission Date: 20120608
  Serious: Yes (Hospitalization)
  Sender: FDA-Public Use
  Company Number: FR-ELI_LILLY_AND_COMPANY-FR201203002106

PATIENT
  Sex: Female

DRUGS (2)
  1. CYMBALTA [Suspect]
     Indication: DEPRESSION
     Dosage: 60 MG, QD
     Route: 048
     Dates: start: 20111127, end: 20111202
  2. LEVOTHYROXINE SODIUM [Concomitant]
     Indication: HYPOTHYROIDISM
     Dosage: 75 UG, UNKNOWN
     Route: 048

REACTIONS (6)
  - MYALGIA [None]
  - OEDEMA PERIPHERAL [None]
  - DIARRHOEA [None]
  - RHABDOMYOLYSIS [None]
  - ELECTROCARDIOGRAM NORMAL [None]
  - HYPOKALAEMIA [None]
